FAERS Safety Report 4458138-9 (Version None)
Quarter: 2004Q3

REPORT INFORMATION
  Report Type: 
  Country: None (occurrence: None)
  Receive Date: 20040924
  Receipt Date: 20040916
  Transmission Date: 20050211
  Serious: Yes (Death, Hospitalization)
  Sender: FDA-Public Use
  Company Number: GB-GLAXOSMITHKLINE-B0345586A

PATIENT
  Age: 84 Year
  Sex: Female

DRUGS (4)
  1. CO-AMOXICLAV [Suspect]
     Indication: LOWER RESPIRATORY TRACT INFECTION
     Dosage: 1.2G PER DAY
     Route: 042
     Dates: start: 20040805, end: 20040810
  2. ASPIRIN [Concomitant]
     Dosage: 300MG PER DAY
     Route: 048
     Dates: end: 20040723
  3. PROMAZINE HCL [Concomitant]
     Indication: DEMENTIA
     Dosage: 25MG PER DAY
     Route: 048
     Dates: end: 20040723
  4. CEFUROXIME AXETIL [Concomitant]
     Indication: LOWER RESPIRATORY TRACT INFECTION
     Dosage: 750MG PER DAY
     Route: 048
     Dates: end: 20040729

REACTIONS (7)
  - BLOOD ALKALINE PHOSPHATASE INCREASED [None]
  - BLOOD BILIRUBIN INCREASED [None]
  - BRONCHOPNEUMONIA [None]
  - DEMENTIA [None]
  - GAMMA-GLUTAMYLTRANSFERASE INCREASED [None]
  - JAUNDICE [None]
  - LIVER FUNCTION TEST ABNORMAL [None]
